FAERS Safety Report 14367610 (Version 2)
Quarter: 2018Q1

REPORT INFORMATION
  Report Type: Spontaneous
  Country: CN (occurrence: CN)
  Receive Date: 20180109
  Receipt Date: 20180115
  Transmission Date: 20180509
  Serious: Yes (Other)
  Sender: FDA-Public Use
  Company Number: CN-JNJFOC-20180100690

PATIENT
  Age: 30 Year
  Sex: Male

DRUGS (3)
  1. RISPERDAL [Suspect]
     Active Substance: RISPERIDONE
     Indication: INSOMNIA
     Dosage: STARTED IN 2010 OR 2011
     Route: 065
  2. RISPERDAL [Suspect]
     Active Substance: RISPERIDONE
     Indication: MENTAL DISORDER
     Dosage: STARTED IN 2010 OR 2011
     Route: 065
  3. RISPERDAL [Suspect]
     Active Substance: RISPERIDONE
     Indication: NIGHTMARE
     Dosage: STARTED IN 2010 OR 2011
     Route: 065

REACTIONS (4)
  - Off label use [Unknown]
  - Drug dependence [Unknown]
  - Adverse drug reaction [Unknown]
  - Product use in unapproved indication [Unknown]
